FAERS Safety Report 18891040 (Version 1)
Quarter: 2021Q1

REPORT INFORMATION
  Report Type: Spontaneous
  Country: US (occurrence: US)
  Receive Date: 20210215
  Receipt Date: 20210215
  Transmission Date: 20210420
  Serious: Yes (Other)
  Sender: FDA-Public Use
  Company Number: US-SA-2021SA044242

PATIENT
  Sex: Male

DRUGS (1)
  1. DUPIXENT [Suspect]
     Active Substance: DUPILUMAB
     Indication: NEURODERMATITIS
     Dosage: 300 MG, QOW
     Route: 058

REACTIONS (6)
  - Hemianaesthesia [Unknown]
  - Paraesthesia [Unknown]
  - Grip strength decreased [Unknown]
  - Vomiting [Unknown]
  - Dizziness [Unknown]
  - Hypoaesthesia [Unknown]
